FAERS Safety Report 24973301 (Version 2)
Quarter: 2025Q3

REPORT INFORMATION
  Report Type: Report from Study
  Country: EG (occurrence: EG)
  Receive Date: 20250216
  Receipt Date: 20250819
  Transmission Date: 20251020
  Serious: No
  Sender: SANDOZ
  Company Number: EG-SANDOZ-SDZ2025EG005591

PATIENT
  Sex: Male

DRUGS (1)
  1. OMNITROPE [Suspect]
     Active Substance: SOMATROPIN
     Indication: Growth hormone deficiency
     Route: 058

REACTIONS (1)
  - Drug dose omission by device [Unknown]
